FAERS Safety Report 8572949-X (Version None)
Quarter: 2012Q2

REPORT INFORMATION
  Report Type: 
  Country: None (occurrence: None)
  Receive Date: 20120423
  Receipt Date: 20081222
  Transmission Date: 20120825
  Serious: Yes (Other)
  Sender: FDA-Public Use
  Company Number: PHEH2008US11323

PATIENT
  Age: 76 Year
  Sex: Female

DRUGS (1)
  1. EXJADE [Suspect]
     Indication: LYMPHOMA
     Dosage: 500 MG, TWO TABLETS PER DAY, ORAL
     Route: 048
     Dates: start: 20081211, end: 20081222

REACTIONS (2)
  - DEAFNESS NEUROSENSORY [None]
  - DEAFNESS [None]
